FAERS Safety Report 16980242 (Version 1)
Quarter: 2019Q4

REPORT INFORMATION
  Report Type: Spontaneous
  Country: US (occurrence: US)
  Receive Date: 20191031
  Receipt Date: 20191031
  Transmission Date: 20200122
  Serious: No
  Sender: FDA-Public Use
  Company Number: US-JNJFOC-20191039828

PATIENT
  Sex: Female
  Weight: 49.94 kg

DRUGS (2)
  1. ORTHO-NOVUM 777 [Suspect]
     Active Substance: ETHINYL ESTRADIOL\NORETHINDRONE
     Indication: MENSTRUATION IRREGULAR
     Route: 048
     Dates: start: 201902
  2. ORTHO-NOVUM 777 [Suspect]
     Active Substance: ETHINYL ESTRADIOL\NORETHINDRONE
     Dosage: FROM 1992 OR 1993
     Route: 048

REACTIONS (3)
  - Insomnia [Unknown]
  - Acne [Unknown]
  - Abnormal weight gain [Unknown]
